FAERS Safety Report 18164565 (Version 1)
Quarter: 2020Q3

REPORT INFORMATION
  Report Type: Spontaneous
  Country: US (occurrence: US)
  Receive Date: 20200818
  Receipt Date: 20200818
  Transmission Date: 20201103
  Serious: Yes (Hospitalization)
  Sender: FDA-Public Use
  Company Number: US-ELI_LILLY_AND_COMPANY-US202008005504

PATIENT
  Sex: Female

DRUGS (1)
  1. VERZENIO [Suspect]
     Active Substance: ABEMACICLIB
     Indication: BREAST CANCER
     Dosage: 150 MG, BID
     Route: 048
     Dates: start: 20180921

REACTIONS (6)
  - Drug ineffective [Unknown]
  - Pleural effusion [Unknown]
  - Gait disturbance [Unknown]
  - Sepsis [Unknown]
  - Coma [Unknown]
  - Hydronephrosis [Unknown]
